FAERS Safety Report 21552680 (Version 8)
Quarter: 2023Q4

REPORT INFORMATION
  Report Type: Report from Study
  Country: US (occurrence: US)
  Receive Date: 20221104
  Receipt Date: 20231107
  Transmission Date: 20240109
  Serious: Yes (Other)
  Sender: FDA-Public Use
  Company Number: US-ABBVIE-4186628

PATIENT
  Sex: Male

DRUGS (8)
  1. IMBRUVICA [Suspect]
     Active Substance: IBRUTINIB
     Indication: Mantle cell lymphoma
     Route: 048
     Dates: start: 20211227, end: 202209
  2. IMBRUVICA [Suspect]
     Active Substance: IBRUTINIB
     Indication: Mantle cell lymphoma
     Route: 048
     Dates: start: 20220107, end: 20231016
  3. IMBRUVICA [Suspect]
     Active Substance: IBRUTINIB
     Indication: Mantle cell lymphoma
     Route: 048
  4. IMBRUVICA [Suspect]
     Active Substance: IBRUTINIB
     Indication: Mantle cell lymphoma
     Route: 048
  5. IMBRUVICA [Suspect]
     Active Substance: IBRUTINIB
     Indication: Mantle cell lymphoma
     Dosage: 4 CAPSULES EVERY OTHER DAY
     Route: 048
  6. CALQUENCE [Concomitant]
     Active Substance: ACALABRUTINIB
     Indication: Mantle cell lymphoma
     Dates: start: 20231011
  7. PREDNISONE [Suspect]
     Active Substance: PREDNISONE
     Indication: Product used for unknown indication
     Route: 065
  8. PREDNISONE [Suspect]
     Active Substance: PREDNISONE
     Indication: Product used for unknown indication
     Route: 065

REACTIONS (28)
  - Foot fracture [Unknown]
  - Illness [Unknown]
  - Rash [Unknown]
  - Diarrhoea [Recovered/Resolved]
  - Neuropathy peripheral [Unknown]
  - Unevaluable event [Unknown]
  - Cough [Unknown]
  - Foot fracture [Not Recovered/Not Resolved]
  - Tooth abscess [Unknown]
  - Lung disorder [Unknown]
  - Blood iron decreased [Unknown]
  - Skin disorder [Unknown]
  - Abdominal pain [Unknown]
  - Haemochromatosis [Unknown]
  - Rash [Recovered/Resolved]
  - Increased tendency to bruise [Unknown]
  - Epistaxis [Unknown]
  - Splenomegaly [Unknown]
  - Blood glucose abnormal [Unknown]
  - Pneumonia [Unknown]
  - Abdominal discomfort [Unknown]
  - Unevaluable event [Unknown]
  - Blood pressure abnormal [Unknown]
  - Muscle spasms [Unknown]
  - Red blood cell count abnormal [Unknown]
  - Tooth infection [Unknown]
  - Anal incontinence [Unknown]
  - Parosmia [Recovering/Resolving]

NARRATIVE: CASE EVENT DATE: 20220101
